FAERS Safety Report 8637077 (Version 2)
Quarter: 2013Q3

REPORT INFORMATION
  Report Type: Spontaneous
  Country: US (occurrence: US)
  Receive Date: 20120626
  Receipt Date: 20130927
  Transmission Date: 20140515
  Serious: Yes (Other)
  Sender: FDA-Public Use
  Company Number: CHPA2012US012741

PATIENT
  Age: 79 Year
  Sex: Male

DRUGS (3)
  1. EXCEDRIN TENSION HEADACHE [Suspect]
     Indication: ARTHRITIS
     Dosage: 1 TO 2 DF, PRN
     Route: 048
  2. EXCEDRIN TENSION HEADACHE [Suspect]
     Indication: HEADACHE
  3. EXCEDRIN TENSION HEADACHE [Suspect]
     Indication: ARTHRALGIA

REACTIONS (6)
  - Prostatomegaly [Not Recovered/Not Resolved]
  - Prostatic specific antigen increased [Not Recovered/Not Resolved]
  - Feeling abnormal [Recovered/Resolved]
  - Therapeutic response unexpected [Unknown]
  - Off label use [Unknown]
  - Underdose [Unknown]
